FAERS Safety Report 15178055 (Version 1)
Quarter: 2018Q3

REPORT INFORMATION
  Report Type: Spontaneous
  Country: JP (occurrence: JP)
  Receive Date: 20180721
  Receipt Date: 20180721
  Transmission Date: 20181010
  Serious: Yes (Other)
  Sender: FDA-Public Use
  Company Number: JP-SUN PHARMACEUTICAL INDUSTRIES LTD-2018RR-178872

PATIENT
  Age: 61 Year
  Sex: Female

DRUGS (2)
  1. NAB?PACLITAXEL [Suspect]
     Active Substance: PACLITAXEL
     Indication: PANCREATIC CARCINOMA
     Dosage: 125 MG/M2, AS SECOND?LINE THERAPY, 3 WEEKS ADMINISTRATION 1 WEEK OFF, 10 COURSES
     Route: 065
  2. GEMCITABINE [Suspect]
     Active Substance: GEMCITABINE\GEMCITABINE HYDROCHLORIDE
     Indication: PANCREATIC CARCINOMA
     Dosage: 1000 MG/M2, AS SECOND?LINE THERAPY, 3 WEEKS ADMINISTRATION 1 WEEK OFF, 10 COURSES
     Route: 065

REACTIONS (5)
  - Drug effect incomplete [Unknown]
  - Nausea [Unknown]
  - Fatigue [Unknown]
  - Malaise [Unknown]
  - Alopecia [Unknown]
